FAERS Safety Report 17765001 (Version 1)
Quarter: 2020Q2

REPORT INFORMATION
  Report Type: Spontaneous
  Country: ES (occurrence: ES)
  Receive Date: 20200511
  Receipt Date: 20200511
  Transmission Date: 20200714
  Serious: Yes (Death)
  Sender: FDA-Public Use
  Company Number: ES-MYLANLABS-2020M1046051

PATIENT
  Age: 39 Year
  Sex: Male

DRUGS (9)
  1. AZITHROMYCIN ANHYDROUS. [Interacting]
     Active Substance: AZITHROMYCIN ANHYDROUS
     Indication: CORONAVIRUS INFECTION
     Dosage: 500 MILLIGRAM, QD
     Route: 048
     Dates: start: 20200327, end: 20200330
  2. IPRATROPIO BROMURO [Concomitant]
     Active Substance: IPRATROPIUM BROMIDE
     Dosage: 20 MICROGRAM, Q6H
     Route: 055
     Dates: start: 20200404, end: 20200409
  3. MIDAZOLAM. [Concomitant]
     Active Substance: MIDAZOLAM
     Indication: SEDATION
     Dosage: 100 MILLIGRAM, QD
     Route: 041
     Dates: start: 20200327, end: 20200409
  4. METOCLOPRAMIDA                     /00041901/ [Interacting]
     Active Substance: METOCLOPRAMIDE
     Indication: PRODUCT USED FOR UNKNOWN INDICATION
     Dosage: 10 MILLIGRAM, Q8H
     Route: 042
     Dates: start: 20200329, end: 20200409
  5. DOLQUINE [Interacting]
     Active Substance: HYDROXYCHLOROQUINE SULFATE
     Indication: CORONAVIRUS INFECTION
     Dosage: 400 MILLIGRAM, BID
     Route: 048
     Dates: start: 20200327, end: 20200401
  6. SALBUTAMOL [Suspect]
     Active Substance: ALBUTEROL
     Dosage: 0.1 MILLIGRAM, Q6H
     Route: 055
     Dates: start: 20200404, end: 20200409
  7. PROPOFOL. [Interacting]
     Active Substance: PROPOFOL
     Indication: SEDATION
     Dosage: UNK
     Route: 042
     Dates: start: 20200408, end: 20200409
  8. ENOXAPARINA SODICA [Concomitant]
     Active Substance: ENOXAPARIN SODIUM
     Dosage: UNK
     Route: 058
     Dates: start: 20200327, end: 20200409
  9. CEFOTAXIMA                         /00497602/ [Concomitant]
     Indication: PNEUMONIA KLEBSIELLA
     Dosage: 4 MILLIGRAM, BID
     Route: 041
     Dates: start: 20200408, end: 20200409

REACTIONS (3)
  - Drug interaction [Unknown]
  - Sudden death [Fatal]
  - Electrocardiogram QT prolonged [Fatal]

NARRATIVE: CASE EVENT DATE: 202004
